FAERS Safety Report 19167606 (Version 1)
Quarter: 2021Q2

REPORT INFORMATION
  Report Type: Spontaneous
  Country: US (occurrence: US)
  Receive Date: 20210421
  Receipt Date: 20210421
  Transmission Date: 20210717
  Serious: No
  Sender: FDA-Public Use
  Company Number: None

PATIENT
  Age: 35 Year
  Sex: Female
  Weight: 74 kg

DRUGS (3)
  1. SKYLA [Suspect]
     Active Substance: LEVONORGESTREL
     Indication: CONTRACEPTION
     Dates: start: 20210322
  2. JANSSEN COVID?19 VACCINE [Suspect]
     Active Substance: AD26.COV2.S
     Indication: IMMUNISATION
     Dates: start: 20210324, end: 20210324
  3. LEVO [Concomitant]
     Active Substance: LEVOBUPIVACAINE

REACTIONS (4)
  - COVID-19 immunisation [None]
  - Headache [None]
  - Vomiting [None]
  - Heavy menstrual bleeding [None]

NARRATIVE: CASE EVENT DATE: 20210326
